FAERS Safety Report 13051519 (Version 1)
Quarter: 2016Q4

REPORT INFORMATION
  Report Type: Spontaneous
  Country: US (occurrence: US)
  Receive Date: 20161221
  Receipt Date: 20161221
  Transmission Date: 20170207
  Serious: Yes (Hospitalization)
  Sender: FDA-Public Use
  Company Number: None

PATIENT
  Age: 67 Year
  Sex: Male
  Weight: 85.7 kg

DRUGS (11)
  1. RIBAVIRIN 200MG MERCK + CO., INC. [Suspect]
     Active Substance: RIBAVIRIN
     Route: 048
  2. LASIX [Concomitant]
     Active Substance: FUROSEMIDE
  3. REBETOL [Concomitant]
     Active Substance: RIBAVIRIN
  4. SPIRONOLACTONE (ALDACTONE) [Concomitant]
  5. STIOLTO RESPIMAT [Concomitant]
     Active Substance: OLODATEROL HYDROCHLORIDE\TIOTROPIUM BROMIDE MONOHYDRATE
  6. ROXICODONE [Concomitant]
     Active Substance: OXYCODONE HYDROCHLORIDE
  7. SOFOSBUVIR-VELPATASVIR (EPCLUSA) [Concomitant]
  8. LACTULOSE (CHRONULAC) [Concomitant]
  9. SOFOSBUVIR/VELPATASVIR 400-100MG GILEAD [Suspect]
     Active Substance: SOFOSBUVIR\VELPATASVIR
     Route: 048
     Dates: start: 20160816
  10. SENNA-DOCUSATE (SENNA-PLUS) [Concomitant]
  11. CHOLECALCIFEROL, VITAMIN D3 [Concomitant]

REACTIONS (6)
  - Atelectasis [None]
  - Acute kidney injury [None]
  - Fatigue [None]
  - Anaemia [None]
  - Therapy cessation [None]
  - Ascites [None]

NARRATIVE: CASE EVENT DATE: 20160908
